FAERS Safety Report 8583034-5 (Version None)
Quarter: 2012Q3

REPORT INFORMATION
  Report Type: 
  Country: None (occurrence: None)
  Receive Date: 20120809
  Receipt Date: 20120805
  Transmission Date: 20120928
  Serious: Yes (Hospitalization)
  Sender: FDA-Public Use
  Company Number: JP-AMGEN-JPNCT2011009253

PATIENT
  Age: 77 Year
  Sex: Male
  Weight: 51 kg

DRUGS (5)
  1. ANTIBIOTICS [Concomitant]
  2. PANITUMUMAB [Suspect]
     Indication: COLORECTAL CANCER
     Dosage: 330 MG, Q2WK
     Route: 041
     Dates: start: 20110125, end: 20110125
  3. OXALIPLATIN [Concomitant]
     Indication: COLORECTAL CANCER
     Route: 041
     Dates: start: 20110317
  4. FLUOROURACIL [Concomitant]
     Indication: COLORECTAL CANCER
     Dosage: UNK
     Route: 041
     Dates: start: 20110125
  5. LEUCOVORIN CALCIUM [Concomitant]
     Indication: COLORECTAL CANCER
     Dosage: UNK
     Route: 041
     Dates: start: 20110125

REACTIONS (1)
  - INTERSTITIAL LUNG DISEASE [None]
